FAERS Safety Report 8002843-4 (Version None)
Quarter: 2011Q4

REPORT INFORMATION
  Report Type: 
  Country: None (occurrence: None)
  Receive Date: 20111222
  Receipt Date: 20101130
  Transmission Date: 20120403
  Serious: No
  Sender: FDA-Public Use
  Company Number: US-GLAXOSMITHKLINE-A0898131A

PATIENT
  Age: 67 Year
  Sex: Male
  Weight: 113.6 kg

DRUGS (11)
  1. LISINOPRIL [Concomitant]
     Indication: CORONARY ARTERY BYPASS
  2. METOPROLOL TARTRATE [Concomitant]
     Indication: CORONARY ARTERY BYPASS
     Dosage: 50MG TWICE PER DAY
  3. EXENATIDE [Concomitant]
     Indication: DIABETES MELLITUS
  4. GLYBURIDE [Concomitant]
     Indication: DIABETES MELLITUS
  5. TRILIPIX [Suspect]
     Indication: BLOOD TRIGLYCERIDES INCREASED
     Dosage: 145MG PER DAY
     Route: 065
     Dates: start: 20100201
  6. JANUMET [Concomitant]
     Indication: DIABETES MELLITUS
  7. SIMVASTATIN [Concomitant]
     Indication: BLOOD TRIGLYCERIDES INCREASED
     Dosage: 10MG PER DAY
  8. TAMSULOSIN HCL [Concomitant]
     Indication: PROSTATOMEGALY
  9. AVODART [Suspect]
     Indication: PROSTATOMEGALY
     Dosage: .5MG PER DAY
     Route: 065
  10. DONEPEZIL HCL [Concomitant]
     Indication: DEMENTIA ALZHEIMER'S TYPE
     Dosage: 10MG PER DAY
  11. FINASTERIDE [Concomitant]
     Indication: PROSTATOMEGALY

REACTIONS (1)
  - BLOOD TRIGLYCERIDES INCREASED [None]
